FAERS Safety Report 8460073-6 (Version None)
Quarter: 2012Q2

REPORT INFORMATION
  Report Type: 
  Country: None (occurrence: None)
  Receive Date: 20120622
  Receipt Date: 20120613
  Transmission Date: 20120825
  Serious: Yes (Hospitalization, Other)
  Sender: FDA-Public Use
  Company Number: IN-PFIZER INC-2012143423

PATIENT
  Age: 9 Year
  Sex: Male

DRUGS (1)
  1. BENZATHINE PENICILLIN G [Suspect]
     Indication: PROPHYLAXIS
     Dosage: UNK
     Route: 030

REACTIONS (2)
  - GANGRENE [None]
  - INCORRECT ROUTE OF DRUG ADMINISTRATION [None]
